FAERS Safety Report 9330729 (Version 1)
Quarter: 2013Q2

REPORT INFORMATION
  Report Type: Spontaneous
  Country: US (occurrence: US)
  Receive Date: 20130605
  Receipt Date: 20130605
  Transmission Date: 20140414
  Serious: Yes (Other)
  Sender: FDA-Public Use
  Company Number: US-AMGEN-USASP2013039081

PATIENT
  Sex: Female

DRUGS (2)
  1. PROLIA [Suspect]
     Indication: BONE LOSS
     Dosage: UNK
  2. ARIMIDEX [Concomitant]

REACTIONS (5)
  - Bone loss [Unknown]
  - Back pain [Not Recovered/Not Resolved]
  - Thrombosis [Unknown]
  - Nerve compression [Unknown]
  - Sciatica [Unknown]
